FAERS Safety Report 18010549 (Version 2)
Quarter: 2020Q3

REPORT INFORMATION
  Report Type: Spontaneous
  Country: US (occurrence: US)
  Receive Date: 20200711
  Receipt Date: 20200813
  Transmission Date: 20201103
  Serious: Yes (Other)
  Sender: FDA-Public Use
  Company Number: NVSC2020US195054

PATIENT

DRUGS (4)
  1. RITUXIMAB. [Suspect]
     Active Substance: RITUXIMAB
     Indication: STEM CELL TRANSPLANT
     Dosage: UNK
     Route: 065
  2. IMMUNOGLOBULIN [IMMUNOGLOBULINS NOS] [Suspect]
     Active Substance: IMMUNE GLOBULIN NOS
     Indication: STEM CELL TRANSPLANT
     Dosage: 400 MG/KG (ON DAY 1 AND 8)
     Route: 042
  3. FLUDARABINE PHOSPHATE. [Suspect]
     Active Substance: FLUDARABINE PHOSPHATE
     Indication: STEM CELL TRANSPLANT
     Dosage: 120 MG/M2 (DIVIDED INTO 30 MG/M2 DOSES ON DAYS 5 TO 2)
     Route: 065
  4. CYCLOPHOSPHAMIDE. [Suspect]
     Active Substance: CYCLOPHOSPHAMIDE
     Indication: STEM CELL TRANSPLANT
     Dosage: 60 MG (ON DAY 2)
     Route: 065

REACTIONS (5)
  - Product use in unapproved indication [Unknown]
  - Sinusitis [Unknown]
  - Pneumonia bacterial [Unknown]
  - Upper respiratory tract infection [Unknown]
  - Bronchitis [Unknown]
